FAERS Safety Report 10220923 (Version 1)
Quarter: 2014Q2

REPORT INFORMATION
  Report Type: Spontaneous
  Country: US (occurrence: None)
  Receive Date: 20140604
  Receipt Date: 20140604
  Transmission Date: 20141212
  Serious: Yes (Hospitalization)
  Sender: FDA-Public Use
  Company Number: 2014-US-006393

PATIENT
  Age: 56 Year
  Sex: Male

DRUGS (1)
  1. XYREM (SODIUM OXYBATE) ORAL SOLUTION, 500 MG/ML [Suspect]
     Indication: FIBROMYALGIA
     Route: 048
     Dates: start: 200605, end: 2008

REACTIONS (4)
  - Neck surgery [None]
  - Off label use [None]
  - Surgery [None]
  - Inappropriate schedule of drug administration [None]
